FAERS Safety Report 15927473 (Version 3)
Quarter: 2019Q1

REPORT INFORMATION
  Report Type: Spontaneous
  Country: US (occurrence: US)
  Receive Date: 20190206
  Receipt Date: 20190308
  Transmission Date: 20190417
  Serious: Yes (Death)
  Sender: FDA-Public Use
  Company Number: US-PORTOLA PHARMACEUTICALS, INC.-2019US000010

PATIENT

DRUGS (3)
  1. ANDEXXA [Suspect]
     Active Substance: ANDEXANET ALFA
     Indication: PROCOAGULANT THERAPY
     Dosage: UNK, BOLUS
     Route: 040
  2. ELIQUIS [Concomitant]
     Active Substance: APIXABAN
     Dosage: UNK
  3. ANDEXXA [Suspect]
     Active Substance: ANDEXANET ALFA
     Dosage: UNK, INFUSION
     Route: 042

REACTIONS (2)
  - Aortic dissection rupture [Fatal]
  - Off label use [Unknown]
